FAERS Safety Report 6238145-6 (Version None)
Quarter: 2009Q2

REPORT INFORMATION
  Report Type: 
  Country: None (occurrence: None)
  Receive Date: 20090617
  Receipt Date: 20090617
  Transmission Date: 20091009
  Serious: No
  Sender: FDA-Public Use
  Company Number: None

PATIENT
  Age: 20 Year
  Sex: Female
  Weight: 65.7716 kg

DRUGS (2)
  1. EFFEXOR [Suspect]
     Indication: DEPRESSION
     Dates: start: 20000101, end: 20030101
  2. PROZAC [Suspect]
     Indication: ANXIETY
     Dates: start: 19930901, end: 19970901

REACTIONS (6)
  - ANXIETY [None]
  - DIZZINESS [None]
  - HALLUCINATION, AUDITORY [None]
  - NIGHTMARE [None]
  - PARAESTHESIA [None]
  - SEXUAL DYSFUNCTION [None]
